FAERS Safety Report 5217643-8 (Version None)
Quarter: 2006Q4

REPORT INFORMATION
  Report Type: 
  Country: None (occurrence: None)
  Receive Date: 20061130
  Receipt Date: 20060614
  Transmission Date: 20070319
  Serious: Yes (Other)
  Sender: FDA-Public Use
  Company Number: US200512003903

PATIENT
  Age: 47 Year
  Sex: Female
  Weight: 90.7 kg

DRUGS (13)
  1. ZYPREXA [Suspect]
     Indication: BIPOLAR DISORDER
     Dosage: SEE IMAGE
     Route: 048
     Dates: start: 19970101, end: 20050101
  2. PROZAC [Concomitant]
  3. PREMARIN [Concomitant]
  4. ULTRAM [Concomitant]
  5. CELEBREX [Concomitant]
  6. NEURONTIN [Concomitant]
  7. HYDROCODONE BITARTRATE + ACETAMINOPHEN [Concomitant]
  8. VIOXX [Concomitant]
  9. EFFEXOR [Concomitant]
  10. CYCLOBENZAPRINE HCL [Concomitant]
  11. KETOROLAC (KETOROLAC) [Concomitant]
  12. ZANAFLEX [Concomitant]
  13. ZOLOFT [Concomitant]

REACTIONS (2)
  - DIABETES MELLITUS NON-INSULIN-DEPENDENT [None]
  - WEIGHT INCREASED [None]
